FAERS Safety Report 6337678-1 (Version None)
Quarter: 2009Q3

REPORT INFORMATION
  Report Type: 
  Country: None (occurrence: None)
  Receive Date: 20090902
  Receipt Date: 20090828
  Transmission Date: 20100115
  Serious: Yes (Life-Threatening, Hospitalization)
  Sender: FDA-Public Use
  Company Number: JP-BRISTOL-MYERS SQUIBB COMPANY-14738009

PATIENT
  Age: 61 Year
  Sex: Male

DRUGS (7)
  1. IRBESARTAN [Suspect]
     Indication: ESSENTIAL HYPERTENSION
     Route: 048
     Dates: start: 20090626, end: 20090809
  2. MEVALOTIN [Suspect]
     Indication: DYSLIPIDAEMIA
     Route: 048
  3. BUFFERIN CARDIO TABS 81 MG [Suspect]
     Indication: THROMBOSIS PROPHYLAXIS
     Dosage: 1 DOSAGE FORM = 1 TABLET
     Route: 048
  4. BLINDED: PLACEBO [Suspect]
     Indication: ESSENTIAL HYPERTENSION
     Route: 048
     Dates: start: 20090626, end: 20090809
  5. AMLODIPINE [Suspect]
     Indication: ESSENTIAL HYPERTENSION
     Dosage: 0, 2.5, 5 OR  10 MG 8 WEEKS
     Dates: start: 20090626
  6. ZYLORIC [Suspect]
     Indication: HYPERURICAEMIA
     Route: 048
  7. MECOBALAMIN [Concomitant]
     Indication: RETINAL DEPIGMENTATION
     Route: 048

REACTIONS (2)
  - CEREBRAL HAEMORRHAGE [None]
  - PNEUMONIA ASPIRATION [None]
